FAERS Safety Report 5280728-4 (Version None)
Quarter: 2007Q1

REPORT INFORMATION
  Report Type: 
  Country: None (occurrence: None)
  Receive Date: 20061221
  Receipt Date: 20061013
  Transmission Date: 20070707
  Serious: No
  Sender: FDA-Public Use
  Company Number: US-CVT-062084

PATIENT
  Age: 88 Year
  Sex: Female

DRUGS (9)
  1. RANEXA [Suspect]
     Indication: ANGINA PECTORIS
     Dosage: 500 MG, BID, ORAL
     Route: 048
     Dates: start: 20061011, end: 20061012
  2. PREVACID [Concomitant]
  3. SYNTHROID [Concomitant]
  4. METOPROLOL TARTRATE [Concomitant]
  5. DEMADEX [Concomitant]
  6. SPIRONOLACTONE [Concomitant]
  7. LOVENOX [Concomitant]
  8. COUMADIN [Concomitant]
  9. INSULIN (INSULIN) [Concomitant]

REACTIONS (2)
  - CHILLS [None]
  - PERIPHERAL COLDNESS [None]
